FAERS Safety Report 24293949 (Version 1)
Quarter: 2024Q3

REPORT INFORMATION
  Report Type: Spontaneous
  Country: IN (occurrence: IN)
  Receive Date: 20240906
  Receipt Date: 20240906
  Transmission Date: 20241017
  Serious: Yes (Other)
  Sender: PFIZER
  Company Number: IN-PFIZER INC-PV202400073957

PATIENT
  Age: 57 Year
  Sex: Male
  Weight: 44.5 kg

DRUGS (6)
  1. CRIZOTINIB [Suspect]
     Active Substance: CRIZOTINIB
     Indication: Lung adenocarcinoma
     Dosage: 250 MG, 2X/DAY (SWALLOW THE CAPSULE WHOLE AT ABOUT THE SAME TIME EACH DAY WITH/WITHOUT FOOD)
     Route: 048
     Dates: start: 20230317
  2. CRIZOTINIB [Suspect]
     Active Substance: CRIZOTINIB
     Dosage: 250 MG, 2X/DAY, (BD)
     Route: 048
     Dates: start: 202307
  3. METOCLOPRAMIDE [Concomitant]
     Active Substance: METOCLOPRAMIDE
     Indication: Nausea
     Dosage: 10 MG, AS NEEDED (SOS) (IN CASE OF NAUSEA/VOMITING, MAX 3 TIMES  DAILY)
  4. METOCLOPRAMIDE [Concomitant]
     Active Substance: METOCLOPRAMIDE
     Indication: Vomiting
  5. LOPERAMIDE [Concomitant]
     Active Substance: LOPERAMIDE
     Indication: Diarrhoea
     Dosage: 2 MG, AS NEEDED (SOS), IN CASE OF LOOSE STOOL 1 TAB AFTER EVERY STOOL, MAX 8 TAB/DAY
  6. CREMAFFIN PLUS [Concomitant]
     Dosage: UNK, AS NEEDED (15 ML)

REACTIONS (4)
  - Leukoencephalopathy [Unknown]
  - Neoplasm progression [Unknown]
  - Blood pressure systolic abnormal [Unknown]
  - Body surface area decreased [Unknown]
